FAERS Safety Report 4980652-8 (Version None)
Quarter: 2006Q2

REPORT INFORMATION
  Report Type: 
  Country: None (occurrence: None)
  Receive Date: 20060424
  Receipt Date: 20050816
  Transmission Date: 20061013
  Serious: Yes (Hospitalization, Other)
  Sender: FDA-Public Use
  Company Number: US-MERCK-0508USA02957

PATIENT
  Age: 52 Year
  Sex: Male
  Weight: 95 kg

DRUGS (31)
  1. VIOXX [Suspect]
     Indication: BACK PAIN
     Route: 048
     Dates: start: 19991001, end: 20010616
  2. ACTOS [Concomitant]
     Route: 065
  3. AMBIEN [Concomitant]
     Route: 065
  4. AMITRIPTYLINE HYDROCHLORIDE [Concomitant]
     Route: 065
  5. ASPIRIN [Concomitant]
     Route: 065
  6. AVALIDE [Concomitant]
     Route: 065
  7. BACLOFEN [Concomitant]
     Route: 065
  8. BAYCOL [Concomitant]
     Route: 065
  9. CARDIZEM CD [Concomitant]
     Route: 065
  10. CELEBREX [Concomitant]
     Route: 065
  11. CYMBALTA [Concomitant]
     Route: 065
  12. ELAVIL [Concomitant]
     Route: 065
  13. FOLIC ACID [Concomitant]
     Route: 065
  14. GABAPENTIN [Concomitant]
     Route: 065
  15. GLUCOTROL XL [Concomitant]
     Route: 065
  16. GLYBURIDE [Concomitant]
     Route: 065
  17. KEFLEX [Concomitant]
     Route: 065
  18. LEVAQUIN [Concomitant]
     Route: 065
  19. PRINIVIL [Concomitant]
     Route: 065
  20. METFORMIN HYDROCHLORIDE [Concomitant]
     Route: 065
  21. NEURONTIN [Concomitant]
     Route: 065
  22. NITROSTAT [Concomitant]
     Route: 065
  23. PLAVIX [Concomitant]
     Route: 065
  24. PLENDIL [Concomitant]
     Route: 065
  25. TENORMIN [Concomitant]
     Route: 065
  26. TYLENOL W/ CODEINE NO. 3 [Concomitant]
     Route: 065
  27. VICODIN ES [Concomitant]
     Route: 065
  28. VYTORIN [Concomitant]
     Route: 065
  29. XENICAL [Concomitant]
     Route: 065
  30. ZESTRIL [Concomitant]
     Route: 065
  31. ZOCOR [Concomitant]
     Route: 065

REACTIONS (2)
  - ACUTE MYOCARDIAL INFARCTION [None]
  - MALIGNANT MELANOMA [None]
